FAERS Safety Report 8850162 (Version 3)
Quarter: 2012Q4

REPORT INFORMATION
  Report Type: Report from Study
  Country: SN (occurrence: SN)
  Receive Date: 20121019
  Receipt Date: 20121023
  Transmission Date: 20130627
  Serious: Yes (Other)
  Sender: FDA-Public Use
  Company Number: SN-VIIV HEALTHCARE LIMITED-A0998007A

PATIENT
  Age: 32 Year
  Sex: Female

DRUGS (3)
  1. RETROVIR [Suspect]
     Indication: ANTIRETROVIRAL THERAPY
     Dosage: 100MGD Per day
     Route: 048
     Dates: start: 20110308
  2. PREZISTA [Suspect]
     Indication: ANTIRETROVIRAL THERAPY
     Dosage: 800MGD Per day
     Route: 048
     Dates: start: 20110308
  3. TRUVADA [Suspect]
     Indication: ANTIRETROVIRAL THERAPY
     Dosage: 600MGD Per day
     Route: 048
     Dates: start: 20110308

REACTIONS (2)
  - Abortion spontaneous [Unknown]
  - Exposure during pregnancy [Unknown]
